FAERS Safety Report 7802483-3 (Version None)
Quarter: 2011Q4

REPORT INFORMATION
  Report Type: 
  Country: None (occurrence: None)
  Receive Date: 20111007
  Receipt Date: 20111004
  Transmission Date: 20120403
  Serious: Yes (Life-Threatening, Hospitalization)
  Sender: FDA-Public Use
  Company Number: GR-GLAXOSMITHKLINE-B0739967A

PATIENT
  Sex: Male
  Weight: 73 kg

DRUGS (7)
  1. PLAVIX [Concomitant]
     Indication: HYPERTENSION
     Dosage: 75MG PER DAY
     Route: 048
  2. MEDROL [Concomitant]
     Indication: PROPHYLAXIS
     Dosage: 4MG TWICE PER DAY
     Route: 048
     Dates: start: 20110629, end: 20110802
  3. LAPATINIB [Suspect]
     Indication: LUNG NEOPLASM MALIGNANT
     Dosage: 1500MG PER DAY
     Route: 048
     Dates: start: 20110704, end: 20110804
  4. IRBESARTAN AND HYDROCHLOROTHIAZIDE [Concomitant]
     Indication: HYPERTENSION
     Route: 048
  5. PROPAFENONE HYDROCHLORIDE [Concomitant]
     Indication: HYPERTENSION
     Dosage: 150MG THREE TIMES PER DAY
     Route: 048
  6. MANIDIPINE [Concomitant]
     Indication: HYPERTENSION
     Dosage: 20MG PER DAY
     Route: 048
  7. ZANTAC [Concomitant]
     Indication: PROPHYLAXIS
     Dosage: 150MG TWICE PER DAY
     Route: 048
     Dates: start: 20110629

REACTIONS (1)
  - PNEUMONIA [None]
